FAERS Safety Report 17240969 (Version 1)
Quarter: 2019Q4

REPORT INFORMATION
  Report Type: Spontaneous
  Country: US (occurrence: US)
  Receive Date: 20191212
  Receipt Date: 20191212
  Transmission Date: 20200122
  Serious: No
  Sender: FDA-Public Use
  Company Number: None

PATIENT
  Age: 64 Year
  Sex: Female

DRUGS (1)
  1. IBRANCE [Suspect]
     Active Substance: PALBOCICLIB
     Indication: BREAST CANCER
     Route: 048
     Dates: start: 201803

REACTIONS (5)
  - Arthralgia [None]
  - Oral disorder [None]
  - Poor peripheral circulation [None]
  - Alopecia [None]
  - Feeling cold [None]

NARRATIVE: CASE EVENT DATE: 201910
